FAERS Safety Report 19566856 (Version 1)
Quarter: 2021Q3

REPORT INFORMATION
  Report Type: Report from Study
  Country: DE (occurrence: DE)
  Receive Date: 20210715
  Receipt Date: 20210715
  Transmission Date: 20211014
  Serious: Yes (Hospitalization, Other)
  Sender: FDA-Public Use
  Company Number: DE-SHIRE-DE202017824

PATIENT
  Age: 59 Year
  Sex: Male
  Weight: 74 kg

DRUGS (52)
  1. TEDUGLUTIDE [Suspect]
     Active Substance: TEDUGLUTIDE
     Dosage: 3.800 MILLIGRAM(0.0500 MG/KG), QD
     Route: 065
     Dates: start: 20150511, end: 20150911
  2. TEDUGLUTIDE [Suspect]
     Active Substance: TEDUGLUTIDE
     Dosage: 2.000 MILLIGRAM(0.0300 MG/KG ), QD
     Route: 065
     Dates: start: 20151016, end: 201604
  3. TEDUGLUTIDE [Suspect]
     Active Substance: TEDUGLUTIDE
     Dosage: 2 MILLIGRAM(0.0300 MG/KG), 4/WEEK
     Route: 065
     Dates: start: 20151009, end: 20151015
  4. TEDUGLUTIDE [Suspect]
     Active Substance: TEDUGLUTIDE
     Dosage: 2.500 MILLIGRAM(0.0300 MG/KG), QD
     Route: 065
     Dates: start: 20160419, end: 20161026
  5. TEDUGLUTIDE [Suspect]
     Active Substance: TEDUGLUTIDE
     Dosage: 4.000 MILLIGRAM(0.0500 MG/KG), QD
     Route: 065
     Dates: start: 201907, end: 20190806
  6. TEDUGLUTIDE [Suspect]
     Active Substance: TEDUGLUTIDE
     Dosage: 3.600 MILLIGRAM (0.0500 MG/KG), QD
     Route: 065
     Dates: start: 20190807, end: 20191002
  7. TEDUGLUTIDE [Suspect]
     Active Substance: TEDUGLUTIDE
     Dosage: 3.800 MILLIGRAM (0.0500 MG/KG), QD
     Route: 065
     Dates: start: 20191003
  8. TEDUGLUTIDE [Suspect]
     Active Substance: TEDUGLUTIDE
     Dosage: 2.000 MILLIGRAM(0.0300 MG/KG), 3/WEEK
     Route: 065
     Dates: start: 20150925, end: 20151001
  9. TEDUGLUTIDE [Suspect]
     Active Substance: TEDUGLUTIDE
     Dosage: 2.000 MILLIGRAM(0.0300 MG/KG), 4/WEEK
     Route: 065
     Dates: start: 20151002, end: 20151008
  10. TEDUGLUTIDE [Suspect]
     Active Substance: TEDUGLUTIDE
     Dosage: 4.000 MILLIGRAM(0.0500 MG/KG), QD
     Route: 065
     Dates: start: 201907, end: 20190806
  11. TEDUGLUTIDE [Suspect]
     Active Substance: TEDUGLUTIDE
     Dosage: 2.700 MILLIGRAM(0.0400 MG/KG), QD
     Route: 065
     Dates: start: 20161027, end: 201910
  12. TEDUGLUTIDE [Suspect]
     Active Substance: TEDUGLUTIDE
     Dosage: 2.700 MILLIGRAM(0.0400 MG/KG), QD
     Route: 065
     Dates: start: 20161027, end: 201910
  13. TEDUGLUTIDE [Suspect]
     Active Substance: TEDUGLUTIDE
     Dosage: 2.000 MILLIGRAM(0.0300 MG/KG), 4/WEEK
     Route: 065
     Dates: start: 20150918, end: 20150924
  14. TEDUGLUTIDE [Suspect]
     Active Substance: TEDUGLUTIDE
     Dosage: 2.000 MILLIGRAM(0.0300 MG/KG ), QD
     Route: 065
     Dates: start: 20151016, end: 201604
  15. TEDUGLUTIDE [Suspect]
     Active Substance: TEDUGLUTIDE
     Dosage: 2.000 MILLIGRAM(0.0300 MG/KG), 3/WEEK
     Route: 065
     Dates: start: 20150925, end: 20151001
  16. TEDUGLUTIDE [Suspect]
     Active Substance: TEDUGLUTIDE
     Dosage: 2.000 MILLIGRAM(0.0300 MG/KG), 3/WEEK
     Route: 065
     Dates: start: 20150925, end: 20151001
  17. TEDUGLUTIDE [Suspect]
     Active Substance: TEDUGLUTIDE
     Dosage: 2.000 MILLIGRAM(0.0300 MG/KG), 4/WEEK
     Route: 065
     Dates: start: 20151002, end: 20151008
  18. TEDUGLUTIDE [Suspect]
     Active Substance: TEDUGLUTIDE
     Dosage: 2 MILLIGRAM(0.0300 MG/KG), 4/WEEK
     Route: 065
     Dates: start: 20151009, end: 20151015
  19. TEDUGLUTIDE [Suspect]
     Active Substance: TEDUGLUTIDE
     Dosage: 4.000 MILLIGRAM(0.0500 MG/KG), QD
     Route: 065
     Dates: start: 201907, end: 20190806
  20. TEDUGLUTIDE [Suspect]
     Active Substance: TEDUGLUTIDE
     Dosage: 3.800 MILLIGRAM (0.0500 MG/KG), QD
     Route: 065
     Dates: start: 20191003
  21. TEDUGLUTIDE [Suspect]
     Active Substance: TEDUGLUTIDE
     Indication: SHORT-BOWEL SYNDROME
     Dosage: UNK
     Route: 065
  22. TEDUGLUTIDE [Suspect]
     Active Substance: TEDUGLUTIDE
     Dosage: 3.800 MILLIGRAM(0.0500 MG/KG), QD
     Route: 065
     Dates: start: 20150511, end: 20150911
  23. TEDUGLUTIDE [Suspect]
     Active Substance: TEDUGLUTIDE
     Dosage: 2.000 MILLIGRAM(0.0300 MG/KG), 3/WEEK
     Route: 065
     Dates: start: 20150925, end: 20151001
  24. TEDUGLUTIDE [Suspect]
     Active Substance: TEDUGLUTIDE
     Dosage: 2.000 MILLIGRAM(0.0300 MG/KG), 4/WEEK
     Route: 065
     Dates: start: 20151002, end: 20151008
  25. TEDUGLUTIDE [Suspect]
     Active Substance: TEDUGLUTIDE
     Dosage: 2.500 MILLIGRAM(0.0300 MG/KG), QD
     Route: 065
     Dates: start: 20160419, end: 20161026
  26. TEDUGLUTIDE [Suspect]
     Active Substance: TEDUGLUTIDE
     Dosage: 2.700 MILLIGRAM(0.0400 MG/KG), QD
     Route: 065
     Dates: start: 20161027, end: 201910
  27. TEDUGLUTIDE [Suspect]
     Active Substance: TEDUGLUTIDE
     Dosage: 2.700 MILLIGRAM(0.0400 MG/KG), QD
     Route: 065
     Dates: start: 20161027, end: 201910
  28. TEDUGLUTIDE [Suspect]
     Active Substance: TEDUGLUTIDE
     Dosage: 4.000 MILLIGRAM(0.0500 MG/KG), QD
     Route: 065
     Dates: start: 201907, end: 20190806
  29. TEDUGLUTIDE [Suspect]
     Active Substance: TEDUGLUTIDE
     Indication: SHORT-BOWEL SYNDROME
     Dosage: UNK
     Route: 065
  30. TEDUGLUTIDE [Suspect]
     Active Substance: TEDUGLUTIDE
     Dosage: 3.800 MILLIGRAM(0.0500 MG/KG), QD
     Route: 065
     Dates: start: 20150511, end: 20150911
  31. TEDUGLUTIDE [Suspect]
     Active Substance: TEDUGLUTIDE
     Dosage: 2.000 MILLIGRAM(0.0300 MG/KG), 4/WEEK
     Route: 065
     Dates: start: 20150918, end: 20150924
  32. TEDUGLUTIDE [Suspect]
     Active Substance: TEDUGLUTIDE
     Dosage: 2.000 MILLIGRAM(0.0300 MG/KG), 4/WEEK
     Route: 065
     Dates: start: 20150918, end: 20150924
  33. TEDUGLUTIDE [Suspect]
     Active Substance: TEDUGLUTIDE
     Dosage: 2 MILLIGRAM(0.0300 MG/KG), 4/WEEK
     Route: 065
     Dates: start: 20151009, end: 20151015
  34. TEDUGLUTIDE [Suspect]
     Active Substance: TEDUGLUTIDE
     Dosage: 3.600 MILLIGRAM (0.0500 MG/KG), QD
     Route: 065
     Dates: start: 20190807, end: 20191002
  35. TEDUGLUTIDE [Suspect]
     Active Substance: TEDUGLUTIDE
     Dosage: 3.600 MILLIGRAM (0.0500 MG/KG), QD
     Route: 065
     Dates: start: 20190807, end: 20191002
  36. TEDUGLUTIDE [Suspect]
     Active Substance: TEDUGLUTIDE
     Dosage: 3.800 MILLIGRAM (0.0500 MG/KG), QD
     Route: 065
     Dates: start: 20191003
  37. LOPERAMIDE [Concomitant]
     Active Substance: LOPERAMIDE
     Indication: DIARRHOEA
     Dosage: 2 MILLIGRAM, QID
     Route: 048
     Dates: start: 20191002
  38. MAGNESIUM [Concomitant]
     Active Substance: MAGNESIUM
     Indication: MUSCLE SPASMS
     Dosage: 999.00 UNK, 3/WEEK
     Route: 042
     Dates: start: 201811, end: 20200108
  39. TEDUGLUTIDE [Suspect]
     Active Substance: TEDUGLUTIDE
     Indication: SHORT-BOWEL SYNDROME
     Dosage: UNK
     Route: 065
  40. TEDUGLUTIDE [Suspect]
     Active Substance: TEDUGLUTIDE
     Dosage: 3.800 MILLIGRAM(0.0500 MG/KG), QD
     Route: 065
     Dates: start: 20150511, end: 20150911
  41. TEDUGLUTIDE [Suspect]
     Active Substance: TEDUGLUTIDE
     Dosage: 2.000 MILLIGRAM(0.0300 MG/KG), 4/WEEK
     Route: 065
     Dates: start: 20151002, end: 20151008
  42. TEDUGLUTIDE [Suspect]
     Active Substance: TEDUGLUTIDE
     Dosage: 2.500 MILLIGRAM(0.0300 MG/KG), QD
     Route: 065
     Dates: start: 20160419, end: 20161026
  43. VIGANTOL [Concomitant]
     Indication: VITAMIN SUPPLEMENTATION
     Dosage: 999.00 UNK
     Route: 065
     Dates: start: 201910
  44. TEDUGLUTIDE [Suspect]
     Active Substance: TEDUGLUTIDE
     Indication: SHORT-BOWEL SYNDROME
     Dosage: UNK
     Route: 065
  45. TEDUGLUTIDE [Suspect]
     Active Substance: TEDUGLUTIDE
     Dosage: 2.000 MILLIGRAM(0.0300 MG/KG), 4/WEEK
     Route: 065
     Dates: start: 20150918, end: 20150924
  46. TEDUGLUTIDE [Suspect]
     Active Substance: TEDUGLUTIDE
     Dosage: 2.000 MILLIGRAM(0.0300 MG/KG ), QD
     Route: 065
     Dates: start: 20151016, end: 201604
  47. TEDUGLUTIDE [Suspect]
     Active Substance: TEDUGLUTIDE
     Dosage: 2.000 MILLIGRAM(0.0300 MG/KG ), QD
     Route: 065
     Dates: start: 20151016, end: 201604
  48. TEDUGLUTIDE [Suspect]
     Active Substance: TEDUGLUTIDE
     Dosage: 2 MILLIGRAM(0.0300 MG/KG), 4/WEEK
     Route: 065
     Dates: start: 20151009, end: 20151015
  49. TEDUGLUTIDE [Suspect]
     Active Substance: TEDUGLUTIDE
     Dosage: 2.500 MILLIGRAM(0.0300 MG/KG), QD
     Route: 065
     Dates: start: 20160419, end: 20161026
  50. TEDUGLUTIDE [Suspect]
     Active Substance: TEDUGLUTIDE
     Dosage: 3.600 MILLIGRAM (0.0500 MG/KG), QD
     Route: 065
     Dates: start: 20190807, end: 20191002
  51. TEDUGLUTIDE [Suspect]
     Active Substance: TEDUGLUTIDE
     Dosage: 3.800 MILLIGRAM (0.0500 MG/KG), QD
     Route: 065
     Dates: start: 20191003
  52. PENICILLIN [Concomitant]
     Active Substance: PENICILLIN
     Indication: RESPIRATORY TRACT INFECTION
     Dosage: 999.00 UNK
     Route: 065
     Dates: start: 201906, end: 201906

REACTIONS (1)
  - Device related infection [Recovered/Resolved]

NARRATIVE: CASE EVENT DATE: 20200526
